FAERS Safety Report 10834795 (Version 1)
Quarter: 2015Q1

REPORT INFORMATION
  Report Type: Spontaneous
  Country: FR (occurrence: FR)
  Receive Date: 20150219
  Receipt Date: 20150219
  Transmission Date: 20150721
  Serious: Yes (Death, Other)
  Sender: FDA-Public Use
  Company Number: FR-ASTELLAS-2015US005045

PATIENT
  Age: 14 Day
  Sex: Female
  Weight: .5 kg

DRUGS (4)
  1. MYCAMINE [Suspect]
     Active Substance: MICAFUNGIN SODIUM
     Indication: SYSTEMIC CANDIDA
     Route: 042
     Dates: start: 20150129
  2. VFEND [Concomitant]
     Active Substance: VORICONAZOLE
     Indication: PRODUCT USED FOR UNKNOWN INDICATION
     Dosage: UNK UNK, UNKNOWN FREQ.
     Route: 065
     Dates: start: 20150209
  3. MYCAMINE [Suspect]
     Active Substance: MICAFUNGIN SODIUM
     Route: 042
     Dates: start: 20150204
  4. MYCAMINE [Suspect]
     Active Substance: MICAFUNGIN SODIUM
     Route: 042
     Dates: start: 20150209

REACTIONS (4)
  - General physical health deterioration [Unknown]
  - Premature baby [Fatal]
  - Drug ineffective [Unknown]
  - Intentional overdose [Unknown]

NARRATIVE: CASE EVENT DATE: 20150204
